FAERS Safety Report 21878091 (Version 1)
Quarter: 2023Q1

REPORT INFORMATION
  Report Type: Report from Study
  Country: US (occurrence: US)
  Receive Date: 20230118
  Receipt Date: 20230118
  Transmission Date: 20230418
  Serious: Yes (Other)
  Sender: FDA-Public Use
  Company Number: US-PFIZER INC-PV202300008396

PATIENT
  Age: 34 Year
  Sex: Female

DRUGS (2)
  1. SOLU-MEDROL [Suspect]
     Active Substance: METHYLPREDNISOLONE SODIUM SUCCINATE
     Indication: Optic neuritis
     Dosage: 250 MG EVERY 6 HOURS
     Route: 042
  2. DELTASONE [Suspect]
     Active Substance: PREDNISONE
     Indication: Optic neuritis
     Dosage: 1 MG/KG OF BODY WEIGHT PER DAY
     Route: 048

REACTIONS (1)
  - Major depression [Recovered/Resolved]
